FAERS Safety Report 5928205-9 (Version None)
Quarter: 2008Q4

REPORT INFORMATION
  Report Type: 
  Country: None (occurrence: None)
  Receive Date: 20081023
  Receipt Date: 20081015
  Transmission Date: 20090506
  Serious: Yes (Hospitalization)
  Sender: FDA-Public Use
  Company Number: PHHY2008FR25030

PATIENT
  Sex: Female

DRUGS (6)
  1. TEGRETOL [Suspect]
     Dosage: UNK
     Route: 048
     Dates: end: 20080706
  2. ACETAMINOPHEN [Suspect]
     Dosage: UNK
     Dates: end: 20080706
  3. SOLUPRED [Suspect]
     Dosage: UNK
     Dates: end: 20080706
  4. RISPERDAL [Suspect]
     Dosage: UNK
     Dates: end: 20080706
  5. ESOMEPRAZOLE MAGNESIUM [Suspect]
     Dosage: UNK
     Dates: end: 20080706
  6. RUBOZINC [Suspect]
     Dosage: UNK
     Dates: end: 20080706

REACTIONS (3)
  - ANTICONVULSANT DRUG LEVEL INCREASED [None]
  - INTENTIONAL DRUG MISUSE [None]
  - SOMNOLENCE [None]
